FAERS Safety Report 8321245-4 (Version None)
Quarter: 2012Q2

REPORT INFORMATION
  Report Type: 
  Country: None (occurrence: None)
  Receive Date: 20120430
  Receipt Date: 20120419
  Transmission Date: 20120825
  Serious: Yes (Other)
  Sender: FDA-Public Use
  Company Number: JP-BRISTOL-MYERS SQUIBB COMPANY-16448169

PATIENT
  Age: 41 Year
  Sex: Female

DRUGS (5)
  1. ORENCIA [Suspect]
     Indication: RHEUMATOID ARTHRITIS
     Dosage: ONCE EVERY MONTH
     Route: 041
     Dates: start: 20110325
  2. PRAVASTATIN SODIUM [Concomitant]
  3. RHEUMATREX [Suspect]
     Indication: RHEUMATOID ARTHRITIS
     Dosage: 10MG/W: 9DEC10-20MAY11 6MG/W: 20MAY11-19AUG11 4MG/W:19AUG11-ONG
     Route: 048
     Dates: start: 20101209
  4. EPADEL [Concomitant]
  5. CORTICOSTEROID [Concomitant]

REACTIONS (1)
  - COLITIS ULCERATIVE [None]
